FAERS Safety Report 17252247 (Version 1)
Quarter: 2020Q1

REPORT INFORMATION
  Report Type: Spontaneous
  Country: US (occurrence: US)
  Receive Date: 20200109
  Receipt Date: 20200109
  Transmission Date: 20200409
  Serious: No
  Sender: FDA-Public Use
  Company Number: US-PFIZER INC-2020009611

PATIENT
  Age: 29 Year
  Sex: Male
  Weight: 82.1 kg

DRUGS (4)
  1. ADVIL LIQUI-GELS [Suspect]
     Active Substance: IBUPROFEN
     Indication: PAIN
     Dosage: UNK, 1X/DAY [ONCE AT NIGHT]
  2. SEROQUEL [Suspect]
     Active Substance: QUETIAPINE FUMARATE
     Dosage: UNK
  3. CITALOPRAM [Suspect]
     Active Substance: CITALOPRAM HYDROBROMIDE
     Dosage: UNK
  4. MULTIVITAMINS [VITAMINS NOS] [Suspect]
     Active Substance: VITAMINS

REACTIONS (1)
  - Abdominal discomfort [Unknown]
